FAERS Safety Report 9550199 (Version 1)
Quarter: 2013Q3

REPORT INFORMATION
  Report Type: Spontaneous
  Country: RO (occurrence: RO)
  Receive Date: 20130924
  Receipt Date: 20130924
  Transmission Date: 20140515
  Serious: Yes (Other)
  Sender: FDA-Public Use
  Company Number: RO-ROCHE-1276637

PATIENT
  Age: 58 Year
  Sex: Male
  Weight: 125 kg

DRUGS (5)
  1. BEVACIZUMAB [Suspect]
     Indication: COLON CANCER
     Route: 065
     Dates: start: 20090415, end: 201303
  2. CAPECITABINE [Suspect]
     Indication: COLON CANCER
     Route: 065
     Dates: start: 201108, end: 201205
  3. FOLINIC ACID [Suspect]
     Indication: COLON CANCER
     Route: 065
     Dates: start: 20090415, end: 201303
  4. 5-FU [Suspect]
     Indication: COLON CANCER
     Route: 065
     Dates: start: 20090415, end: 201303
  5. OXALIPLATIN [Suspect]
     Indication: COLON CANCER
     Route: 065
     Dates: start: 20090415, end: 201303

REACTIONS (1)
  - Metastases to liver [Recovering/Resolving]
